FAERS Safety Report 18926007 (Version 1)
Quarter: 2021Q1

REPORT INFORMATION
  Report Type: Spontaneous
  Country: FR (occurrence: FR)
  Receive Date: 20210222
  Receipt Date: 20210222
  Transmission Date: 20210420
  Serious: Yes (Death, Hospitalization, Other)
  Sender: FDA-Public Use
  Company Number: FR-AUROBINDO-AUR-APL-2021-007474

PATIENT
  Age: 61 Year
  Sex: Male
  Weight: 47 kg

DRUGS (6)
  1. OXALIPLATIN. [Suspect]
     Active Substance: OXALIPLATIN
     Indication: COLORECTAL CANCER METASTATIC
     Dosage: UNK
     Route: 065
  2. CETUXIMAB. [Suspect]
     Active Substance: CETUXIMAB
     Dosage: 770 MILLIGRAM 0.5 MONTH
     Route: 042
     Dates: start: 20170103
  3. CETUXIMAB. [Suspect]
     Active Substance: CETUXIMAB
     Indication: COLORECTAL CANCER METASTATIC
     Dosage: 750 MILLIGRAM
     Route: 042
     Dates: end: 20170321
  4. 5?FU [Suspect]
     Active Substance: FLUOROURACIL
     Dosage: 600 MILLIGRAM 0.5 MONTH
     Route: 040
     Dates: start: 20170103, end: 20170321
  5. IRINOTECAN SOLUTION FOR INFUSION [Suspect]
     Active Substance: IRINOTECAN
     Indication: COLORECTAL CANCER METASTATIC
     Dosage: 210 MILLIGRAM 0.5 MONTH
     Route: 042
     Dates: start: 20170103, end: 20170321
  6. 5?FU [Suspect]
     Active Substance: FLUOROURACIL
     Indication: COLORECTAL CANCER METASTATIC
     Dosage: 3500 MILLIGRAM 0.5 MONTH (OVER 48 HOURS)
     Route: 042
     Dates: start: 20170103, end: 20170323

REACTIONS (3)
  - Sudden death [Fatal]
  - Asthenia [Not Recovered/Not Resolved]
  - Off label use [Unknown]

NARRATIVE: CASE EVENT DATE: 20170331
